FAERS Safety Report 15679390 (Version 1)
Quarter: 2018Q4

REPORT INFORMATION
  Report Type: Spontaneous
  Country: IT (occurrence: IT)
  Receive Date: 20181203
  Receipt Date: 20181203
  Transmission Date: 20190205
  Serious: Yes (Other)
  Sender: FDA-Public Use
  Company Number: IT-AUROBINDO-AUR-APL-2018-057745

PATIENT
  Age: 25 Year
  Sex: Female

DRUGS (2)
  1. AZITHROMYCIN ANHYDROUS. [Suspect]
     Active Substance: AZITHROMYCIN ANHYDROUS
     Indication: PHARYNGOTONSILLITIS
     Dosage: TOTAL
     Route: 048
     Dates: start: 20180308, end: 20180308
  2. CEFALEXIN [Suspect]
     Active Substance: CEPHALEXIN
     Indication: PHARYNGOTONSILLITIS
     Dosage: TOTAL
     Route: 048
     Dates: start: 20180308, end: 20180309

REACTIONS (1)
  - Lip oedema [Recovering/Resolving]

NARRATIVE: CASE EVENT DATE: 20180308
